FAERS Safety Report 11966082 (Version 1)
Quarter: 2016Q1

REPORT INFORMATION
  Report Type: Spontaneous
  Country: US (occurrence: None)
  Receive Date: 20160125
  Receipt Date: 20160125
  Transmission Date: 20160526
  Serious: Yes (Other)
  Sender: FDA-Public Use
  Company Number: None

PATIENT
  Age: 61 Year
  Sex: Male
  Weight: 99.79 kg

DRUGS (5)
  1. TAMSULOSIN HCL 0.4MG CAPS [Suspect]
     Active Substance: TAMSULOSIN HYDROCHLORIDE
     Indication: PROSTATOMEGALY
     Dosage: 1 ONCE DAILY
     Dates: start: 20151019, end: 20160122
  2. TAMSULOSIN HCL 0.4MG CAPS [Suspect]
     Active Substance: TAMSULOSIN HYDROCHLORIDE
     Indication: PROSTATE CANCER
     Dosage: 1 ONCE DAILY
     Dates: start: 20151019, end: 20160122
  3. VITAMIN D [Concomitant]
     Active Substance: CHOLECALCIFEROL
  4. VITAMIN B [Concomitant]
     Active Substance: VITAMIN B
  5. VITAMIN C [Concomitant]
     Active Substance: ASCORBIC ACID

REACTIONS (4)
  - Food interaction [None]
  - Dysuria [None]
  - Pollakiuria [None]
  - Drug ineffective [None]

NARRATIVE: CASE EVENT DATE: 20160119
